FAERS Safety Report 7525111-3 (Version None)
Quarter: 2011Q2

REPORT INFORMATION
  Report Type: 
  Country: None (occurrence: None)
  Receive Date: 20110602
  Receipt Date: 20110602
  Transmission Date: 20111010
  Serious: Yes (Hospitalization)
  Sender: FDA-Public Use
  Company Number: None

PATIENT
  Age: 66 Year
  Sex: Male
  Weight: 94 kg

DRUGS (2)
  1. METOPROLOL [Suspect]
     Indication: HYPERTENSION
     Dosage: 100 MG BID PO
     Route: 048
     Dates: start: 20101229, end: 20110521
  2. CLONIDINE [Suspect]
     Indication: HYPERTENSION
     Dosage: 0.3 MG BID PO
     Route: 048
     Dates: start: 20110216, end: 20110521

REACTIONS (7)
  - SYNCOPE [None]
  - BRADYCARDIA [None]
  - WEIGHT DECREASED [None]
  - VOMITING [None]
  - ORTHOSTATIC HYPOTENSION [None]
  - HYPOVOLAEMIA [None]
  - NAUSEA [None]
